FAERS Safety Report 7201453-6 (Version None)
Quarter: 2010Q4

REPORT INFORMATION
  Report Type: 
  Country: None (occurrence: None)
  Receive Date: 20101227
  Receipt Date: 20101227
  Transmission Date: 20110411
  Serious: Yes (Disabling, Other)
  Sender: FDA-Public Use
  Company Number: None

PATIENT
  Age: 46 Year
  Sex: Female
  Weight: 87.5442 kg

DRUGS (1)
  1. PRISTIQ [Suspect]
     Indication: DEPRESSION
     Dosage: 1 TABLET DAILY PO
     Route: 048
     Dates: start: 20100601, end: 20101224

REACTIONS (8)
  - APATHY [None]
  - DIZZINESS [None]
  - FATIGUE [None]
  - HYPERTENSION [None]
  - INSOMNIA [None]
  - MIGRAINE [None]
  - PARAESTHESIA [None]
  - WEIGHT INCREASED [None]
